FAERS Safety Report 13446776 (Version 2)
Quarter: 2017Q2

REPORT INFORMATION
  Report Type: Report from Study
  Country: JP (occurrence: JP)
  Receive Date: 20170417
  Receipt Date: 20170605
  Transmission Date: 20170830
  Serious: Yes (Hospitalization)
  Sender: FDA-Public Use
  Company Number: JP-JT-EVA201700963KERYXP-001

PATIENT
  Age: 79 Year
  Sex: Female
  Weight: 49 kg

DRUGS (11)
  1. RIONA [Suspect]
     Active Substance: FERRIC CITRATE ANHYDROUS
     Indication: HYPERPHOSPHATAEMIA
     Dosage: 750 MG, QD
     Route: 048
     Dates: start: 20160622, end: 20160719
  2. NEXIUM [Concomitant]
     Active Substance: ESOMEPRAZOLE MAGNESIUM
     Indication: HYPERCHLORHYDRIA
     Dosage: 20 MG, QD
     Route: 048
     Dates: start: 20121022
  3. BENIDIPINE HYDROCHLORIDE [Concomitant]
     Active Substance: BENIDIPINE HYDROCHLORIDE
     Dosage: 2 MG, QD
     Route: 048
     Dates: start: 20131106
  4. POLAPREZINC [Concomitant]
     Active Substance: POLAPREZINC
     Dosage: 150 MG, QD
     Route: 048
     Dates: start: 20160608
  5. FUROSEMIDE. [Concomitant]
     Active Substance: FUROSEMIDE
     Dosage: 120 MG, QD
     Route: 048
     Dates: start: 20120305
  6. BIO-THREE [Concomitant]
     Active Substance: HERBALS
     Dosage: UNK
     Route: 048
     Dates: start: 20121226
  7. PICOSULFATE DE SODIUM [Concomitant]
     Dosage: UNK
     Route: 048
     Dates: start: 20160323, end: 20160824
  8. CINACALCET HYDROCHLORIDE [Concomitant]
     Active Substance: CINACALCET HYDROCHLORIDE
     Indication: HYPERPARATHYROIDISM SECONDARY
     Dosage: 25 MG, QD
     Route: 048
     Dates: start: 20160706, end: 20160905
  9. MAGMITT [Concomitant]
     Active Substance: MAGNESIUM OXIDE
     Dosage: 660 MG, QD
     Route: 048
     Dates: start: 20120207
  10. EPADEL                             /01682402/ [Concomitant]
     Active Substance: ICOSAPENT ETHYL
     Dosage: 1800 MG, QD
     Route: 048
     Dates: start: 20130213
  11. NESP [Concomitant]
     Active Substance: DARBEPOETIN ALFA
     Indication: NEPHROGENIC ANAEMIA
     Dosage: 40 MICRO-G, UNK
     Route: 042

REACTIONS (2)
  - Abdominal pain upper [Recovered/Resolved]
  - Diarrhoea [Recovered/Resolved]

NARRATIVE: CASE EVENT DATE: 201607
